FAERS Safety Report 7083657-9 (Version None)
Quarter: 2010Q4

REPORT INFORMATION
  Report Type: 
  Country: None (occurrence: None)
  Receive Date: 20101104
  Receipt Date: 20101022
  Transmission Date: 20110411
  Serious: Yes (Hospitalization)
  Sender: FDA-Public Use
  Company Number: JP-ELI_LILLY_AND_COMPANY-JP201010001306

PATIENT
  Age: 28 Year
  Sex: Male

DRUGS (5)
  1. ZYPREXA [Suspect]
     Route: 048
     Dates: start: 20100523, end: 20100926
  2. CERCINE [Concomitant]
     Route: 048
     Dates: start: 20100701, end: 20100926
  3. MYSLEE [Concomitant]
     Route: 048
     Dates: start: 20100701, end: 20100926
  4. FLUNITRAZEPAM [Concomitant]
     Route: 048
     Dates: start: 20100726, end: 20100926
  5. ALLOPURINOL [Concomitant]
     Route: 048
     Dates: start: 20100726, end: 20100926

REACTIONS (2)
  - LIVER DISORDER [None]
  - RENAL FAILURE ACUTE [None]
